FAERS Safety Report 7279040-3 (Version None)
Quarter: 2011Q1

REPORT INFORMATION
  Report Type: 
  Country: None (occurrence: None)
  Receive Date: 20110207
  Receipt Date: 20110127
  Transmission Date: 20110831
  Serious: Yes (Other)
  Sender: FDA-Public Use
  Company Number: PHHY2010DE08150

PATIENT
  Sex: Male

DRUGS (1)
  1. RITALIN LA [Suspect]
     Indication: HYPERKINESIA
     Dosage: 40 MG/DAY IN THE MORNING
     Route: 048
     Dates: start: 20091028, end: 20110117

REACTIONS (4)
  - TENDON RUPTURE [None]
  - HAND FRACTURE [None]
  - AGGRESSION [None]
  - DRUG INEFFECTIVE [None]
